FAERS Safety Report 6019430-X (Version None)
Quarter: 2008Q4

REPORT INFORMATION
  Report Type: 
  Country: None (occurrence: None)
  Receive Date: 20081224
  Receipt Date: 20081218
  Transmission Date: 20090506
  Serious: Yes (Life-Threatening, Hospitalization)
  Sender: FDA-Public Use
  Company Number: JP-JNJFOC-20080905777

PATIENT
  Sex: Male

DRUGS (6)
  1. LOPEMIN [Suspect]
     Indication: DIARRHOEA
     Route: 048
  2. PHELLOBERIN [Concomitant]
     Indication: DIARRHOEA
     Route: 048
  3. BIOFERMIN [Concomitant]
     Indication: DIARRHOEA
     Route: 048
  4. COLONEL [Concomitant]
     Indication: DIARRHOEA
     Route: 048
  5. TAKEPRON [Concomitant]
     Route: 048
  6. TIENAM [Concomitant]
     Indication: INFECTION
     Route: 041

REACTIONS (5)
  - ALTERED STATE OF CONSCIOUSNESS [None]
  - DYSPHAGIA [None]
  - HEPATIC FUNCTION ABNORMAL [None]
  - MIOSIS [None]
  - RESPIRATORY FAILURE [None]
